FAERS Safety Report 6927557-0 (Version None)
Quarter: 2010Q3

REPORT INFORMATION
  Report Type: 
  Country: None (occurrence: None)
  Receive Date: 20100816
  Receipt Date: 20100816
  Transmission Date: 20110219
  Serious: Yes (Life-Threatening, Hospitalization)
  Sender: FDA-Public Use
  Company Number: None

PATIENT
  Sex: Female
  Weight: 113.3993 kg

DRUGS (1)
  1. DIOVAN [Suspect]
     Indication: HYPERTENSION
     Dosage: ORAL
     Route: 048
     Dates: start: 20090201, end: 20100613

REACTIONS (4)
  - BLOOD POTASSIUM INCREASED [None]
  - CONDITION AGGRAVATED [None]
  - DIALYSIS [None]
  - LIMB IMMOBILISATION [None]
